FAERS Safety Report 24275145 (Version 1)
Quarter: 2024Q3

REPORT INFORMATION
  Report Type: Report from Study
  Country: IT (occurrence: None)
  Receive Date: 20240902
  Receipt Date: 20240902
  Transmission Date: 20241016
  Serious: Yes (Death)
  Sender: NODEN PHARMA
  Company Number: IT-Noden Pharma DAC-NOD202408-000112

PATIENT
  Age: 50 Year
  Sex: Male

DRUGS (1)
  1. COCAINE HYDROCHLORIDE [Suspect]
     Active Substance: COCAINE HYDROCHLORIDE
     Indication: Product used for unknown indication
     Dosage: UNKNOWN

REACTIONS (2)
  - Road traffic accident [Fatal]
  - Multiple injuries [Fatal]
